FAERS Safety Report 5830540-X (Version None)
Quarter: 2008Q3

REPORT INFORMATION
  Report Type: 
  Country: None (occurrence: None)
  Receive Date: 20080801
  Receipt Date: 20070705
  Transmission Date: 20090109
  Serious: No
  Sender: FDA-Public Use
  Company Number: US-BRISTOL-MYERS SQUIBB COMPANY-13835772

PATIENT
  Age: 65 Year
  Sex: Male
  Weight: 98 kg

DRUGS (4)
  1. WARFARIN SODIUM [Suspect]
     Indication: DEEP VEIN THROMBOSIS
     Dosage: DOSAGE FORM = 7.5 MG DAILY FOR 5 DAYS; THEN 5.0 MG FOR 2 DAYS
  2. COSOPT [Concomitant]
  3. ALPHAGAN [Concomitant]
  4. DOXAZOSIN MESYLATE [Concomitant]
     Dates: end: 20070601

REACTIONS (2)
  - GINGIVAL BLEEDING [None]
  - HAEMOPTYSIS [None]
